FAERS Safety Report 5534349-6 (Version None)
Quarter: 2007Q4

REPORT INFORMATION
  Report Type: 
  Country: None (occurrence: None)
  Receive Date: 20071130
  Receipt Date: 20071113
  Transmission Date: 20080405
  Serious: Yes (Hospitalization)
  Sender: FDA-Public Use
  Company Number: ADE2007-0045

PATIENT
  Age: 90 Year
  Sex: Male

DRUGS (1)
  1. SIMVASTATIN [Suspect]
     Dosage: 10 MG ORAL
     Route: 048

REACTIONS (2)
  - HAEMATURIA [None]
  - ULTRASOUND PROSTATE ABNORMAL [None]
